FAERS Safety Report 11217792 (Version 2)
Quarter: 2016Q3

REPORT INFORMATION
  Report Type: Spontaneous
  Country: US (occurrence: US)
  Receive Date: 20150625
  Receipt Date: 20160901
  Transmission Date: 20161109
  Serious: No
  Sender: FDA-Public Use
  Company Number: US-BAYER-2015-364876

PATIENT
  Age: 76 Year
  Sex: Female
  Weight: 70.3 kg

DRUGS (7)
  1. MIRALAX [Suspect]
     Active Substance: POLYETHYLENE GLYCOL 3350
     Indication: CONSTIPATION
     Dosage: 1 DOSE, QD
     Route: 048
     Dates: start: 201206
  2. AMLODIPINE [Concomitant]
     Active Substance: AMLODIPINE BESYLATE
     Dosage: UNK
  3. MIRALAX [Suspect]
     Active Substance: POLYETHYLENE GLYCOL 3350
     Indication: GASTROINTESTINAL DISORDER
     Dosage: 1 DF, QD
     Route: 048
     Dates: start: 2013
  4. SIMVASTATIN. [Concomitant]
     Active Substance: SIMVASTATIN
     Indication: BLOOD CHOLESTEROL INCREASED
     Dosage: UNK
  5. ACEBUTOLOL [Concomitant]
     Active Substance: ACEBUTOLOL
     Indication: HYPERTENSION
     Dosage: UNK
  6. GABAPENTIN. [Concomitant]
     Active Substance: GABAPENTIN
  7. LOSARTAN. [Concomitant]
     Active Substance: LOSARTAN

REACTIONS (5)
  - Change of bowel habit [Not Recovered/Not Resolved]
  - Product use issue [Unknown]
  - Constipation [Not Recovered/Not Resolved]
  - Product use issue [Not Recovered/Not Resolved]
  - Product use issue [Not Recovered/Not Resolved]

NARRATIVE: CASE EVENT DATE: 201206
